FAERS Safety Report 7114602-5 (Version None)
Quarter: 2010Q4

REPORT INFORMATION
  Report Type: 
  Country: None (occurrence: None)
  Receive Date: 20101121
  Receipt Date: 20101108
  Transmission Date: 20110411
  Serious: Yes (Hospitalization, Other)
  Sender: FDA-Public Use
  Company Number: TW-MYLANLABS-2010S1020756

PATIENT
  Age: 27 Year
  Sex: Male

DRUGS (15)
  1. CYCLOPHOSPHAMIDE [Suspect]
     Indication: ACUTE LYMPHOCYTIC LEUKAEMIA
     Route: 065
     Dates: start: 20041201, end: 20050301
  2. CYCLOPHOSPHAMIDE [Suspect]
     Dosage: 2 CYCLES
     Route: 065
     Dates: start: 20050101, end: 20050101
  3. CYCLOPHOSPHAMIDE [Suspect]
     Dosage: 1 CYCLE
     Route: 065
     Dates: start: 20050101, end: 20050101
  4. METHOTREXATE [Suspect]
     Indication: ACUTE LYMPHOCYTIC LEUKAEMIA
     Route: 037
     Dates: start: 20041201, end: 20050301
  5. METHOTREXATE [Suspect]
     Route: 065
     Dates: start: 20041201, end: 20050301
  6. METHOTREXATE [Suspect]
     Route: 040
     Dates: end: 20080110
  7. VINCRISTINE [Concomitant]
     Indication: ACUTE LYMPHOCYTIC LEUKAEMIA
     Route: 065
     Dates: start: 20041201, end: 20050301
  8. DAUNORUBICIN HCL [Concomitant]
     Indication: ACUTE LYMPHOCYTIC LEUKAEMIA
     Route: 065
     Dates: start: 20041201, end: 20050301
  9. ASPARAGINASE [Concomitant]
     Indication: ACUTE LYMPHOCYTIC LEUKAEMIA
     Route: 065
     Dates: start: 20041201, end: 20050301
  10. PREDNISOLONE [Concomitant]
     Indication: ACUTE LYMPHOCYTIC LEUKAEMIA
     Route: 065
     Dates: start: 20041201, end: 20050301
  11. CYTARABINE [Concomitant]
     Indication: ACUTE LYMPHOCYTIC LEUKAEMIA
     Route: 065
     Dates: start: 20041201, end: 20050301
  12. MITOXANTRONE [Concomitant]
     Indication: ACUTE LYMPHOCYTIC LEUKAEMIA
     Route: 065
     Dates: start: 20041201, end: 20050301
  13. ETOPOSIDE [Concomitant]
     Indication: ACUTE LYMPHOCYTIC LEUKAEMIA
     Dosage: 1 CYCLE OF CEP; ETOPOSIDE 100 MG/M2 X 4 DAYS
     Route: 065
  14. CISPLATIN [Concomitant]
     Indication: ACUTE LYMPHOCYTIC LEUKAEMIA
     Dosage: 1 CYCLE OF CEP; CISPLATIN 50 MG/M2 X 2 DAYS
     Route: 065
  15. MERCAPTOPURINE [Concomitant]
     Indication: ACUTE LYMPHOCYTIC LEUKAEMIA
     Route: 065
     Dates: end: 20080101

REACTIONS (2)
  - PNEUMOTHORAX [None]
  - PULMONARY FIBROSIS [None]
